FAERS Safety Report 10480012 (Version 1)
Quarter: 2014Q3

REPORT INFORMATION
  Report Type: Spontaneous
  Country: US (occurrence: US)
  Receive Date: 20140929
  Receipt Date: 20140929
  Transmission Date: 20150326
  Serious: Yes (Disabling, Other)
  Sender: FDA-Public Use
  Company Number: 2014SP005384

PATIENT
  Age: 35 Year
  Sex: Male

DRUGS (18)
  1. CYTARABINE. [Suspect]
     Active Substance: CYTARABINE
     Indication: ACUTE LYMPHOCYTIC LEUKAEMIA
     Route: 042
     Dates: start: 20140818, end: 20140823
  2. METRONIDAZOLE TABLETS [Concomitant]
     Indication: ANTIBIOTIC THERAPY
     Route: 048
     Dates: start: 20140831, end: 20140903
  3. VANCOMYCIN [Concomitant]
     Active Substance: VANCOMYCIN
     Indication: BACTERIAL INFECTION
     Route: 042
     Dates: start: 20140913
  4. CLINDAMYCIN [Concomitant]
     Active Substance: CLINDAMYCIN\CLINDAMYCIN PHOSPHATE
     Indication: RASH
     Route: 061
     Dates: start: 20140908, end: 20140908
  5. FLUDARABINE [Suspect]
     Active Substance: FLUDARABINE PHOSPHATE
     Indication: ACUTE LYMPHOCYTIC LEUKAEMIA
     Route: 042
     Dates: start: 20140818, end: 20140822
  6. FILGRASTIM [Suspect]
     Active Substance: FILGRASTIM
     Indication: ACUTE LYMPHOCYTIC LEUKAEMIA
     Route: 058
     Dates: start: 20140818, end: 20140818
  7. ACYCLOVIR. [Concomitant]
     Active Substance: ACYCLOVIR
     Indication: ANTIVIRAL TREATMENT
     Route: 048
     Dates: start: 20140830, end: 20140907
  8. ZOSYN [Concomitant]
     Active Substance: PIPERACILLIN SODIUM\TAZOBACTAM SODIUM
     Indication: BACTERIAL INFECTION
     Route: 042
     Dates: start: 20140903, end: 20140910
  9. TOBRAMYCIN SULFATE. [Concomitant]
     Active Substance: TOBRAMYCIN SULFATE
     Route: 042
     Dates: start: 20140903, end: 20140905
  10. NOXAFIL [Concomitant]
     Active Substance: POSACONAZOLE
     Indication: ANTIFUNGAL TREATMENT
     Route: 048
     Dates: start: 20140826
  11. TRAMADOL [Concomitant]
     Active Substance: TRAMADOL
     Indication: PAIN
     Route: 048
     Dates: start: 20140828, end: 20140902
  12. IMMUNOGLOBULIN [Concomitant]
     Active Substance: HUMAN IMMUNOGLOBULIN G
     Indication: THROMBOCYTOPENIA
     Route: 042
     Dates: start: 20140903, end: 20140904
  13. HYDROCORTISONE/PRAMOXINE /00646301/ [Concomitant]
     Indication: RECTAL ABSCESS
     Route: 054
     Dates: start: 20140902, end: 20140902
  14. VANCOMYCIN [Concomitant]
     Active Substance: VANCOMYCIN
     Indication: BACTERIAL INFECTION
     Route: 042
     Dates: start: 20140903, end: 20140904
  15. VANCOMYCIN [Concomitant]
     Active Substance: VANCOMYCIN
     Indication: BACTERIAL INFECTION
     Route: 042
     Dates: start: 20140905, end: 20140907
  16. CEFEPIME [Concomitant]
     Active Substance: CEFEPIME\CEFEPIME HYDROCHLORIDE
     Indication: ANTIBIOTIC THERAPY
     Route: 042
     Dates: start: 20140827, end: 20140903
  17. DAPTOMYCIN [Concomitant]
     Active Substance: DAPTOMYCIN
     Indication: FOLLICULITIS
     Route: 042
     Dates: start: 20140826, end: 20140903
  18. AMBISOME [Concomitant]
     Active Substance: AMPHOTERICIN B
     Indication: RECTAL ABSCESS
     Route: 042
     Dates: start: 20140905, end: 20140909

REACTIONS (5)
  - Perirectal abscess [Not Recovered/Not Resolved]
  - Folliculitis [Not Recovered/Not Resolved]
  - Thrombocytopenia [Not Recovered/Not Resolved]
  - Cytomegalovirus chorioretinitis [Not Recovered/Not Resolved]
  - Blindness [Not Recovered/Not Resolved]

NARRATIVE: CASE EVENT DATE: 20140827
